FAERS Safety Report 8013669-X (Version None)
Quarter: 2011Q4

REPORT INFORMATION
  Report Type: 
  Country: None (occurrence: None)
  Receive Date: 20111229
  Receipt Date: 20111219
  Transmission Date: 20120403
  Serious: Yes (Hospitalization)
  Sender: FDA-Public Use
  Company Number: DE-PFIZER INC-2011230669

PATIENT
  Age: 72 Year
  Sex: Male
  Weight: 78 kg

DRUGS (6)
  1. TEMSIROLIMUS [Suspect]
     Dosage: 75 MG, UNK
     Dates: start: 20110831, end: 20111005
  2. PREDNISOLONE [Concomitant]
     Indication: RHEUMATOID ARTHRITIS
     Dosage: 5 MG, 1X/DAY
     Route: 048
     Dates: start: 20090601
  3. BISOPROLOL [Concomitant]
     Indication: HYPERTENSION
     Dosage: 2.5 MG, 1X/DAY, SINCE 37 YEARS
     Route: 048
  4. RITUXIMAB [Suspect]
     Dosage: 690 MG, UNK
     Dates: start: 20110829, end: 20111005
  5. RAMIPRIL [Concomitant]
     Indication: HYPERTENSION
     Dosage: 5 MG, 1X/DAY
     Route: 048
     Dates: start: 20080101
  6. BENDAMUSTINE [Suspect]
     Dosage: 165 MG, UNK
     Dates: start: 20110830, end: 20111005

REACTIONS (3)
  - PNEUMONIA PRIMARY ATYPICAL [None]
  - LUNG INFECTION [None]
  - STAPHYLOCOCCAL INFECTION [None]
